FAERS Safety Report 8231893-8 (Version None)
Quarter: 2012Q1

REPORT INFORMATION
  Report Type: 
  Country: None (occurrence: None)
  Receive Date: 20120320
  Receipt Date: 20120309
  Transmission Date: 20120608
  Serious: Yes (Other)
  Sender: FDA-Public Use
  Company Number: IMP_05769_2012

PATIENT
  Age: 80 Year
  Sex: Male

DRUGS (3)
  1. TORAEMIDE [Concomitant]
  2. GEMFIBROZIL [Concomitant]
  3. GALANTAMINE (GALANTAMINE) [Suspect]
     Indication: DEMENTIA
     Dosage: (24 MG DAILY), (DF)
     Dates: start: 20080901

REACTIONS (2)
  - RESPIRATORY DISORDER [None]
  - MYOCLONUS [None]
